FAERS Safety Report 22283497 (Version 2)
Quarter: 2023Q2

REPORT INFORMATION
  Report Type: Report from Study
  Country: KR (occurrence: KR)
  Receive Date: 20230504
  Receipt Date: 20230519
  Transmission Date: 20230722
  Serious: Yes (Other)
  Sender: FDA-Public Use
  Company Number: KR-TEVA-2023-KR-2883436

PATIENT
  Sex: Female

DRUGS (4)
  1. DOXORUBICIN [Suspect]
     Active Substance: DOXORUBICIN
     Indication: Breast cancer
     Dosage: TAC ADJUVANT CHEMOTHERAPY; ON DAY 1 AND EVERY 3 WEEKS, 50 MG/M2
     Route: 065
  2. CYCLOPHOSPHAMIDE [Suspect]
     Active Substance: CYCLOPHOSPHAMIDE
     Indication: Breast cancer
     Dosage: TAC ADJUVANT CHEMOTHERAPY; ON DAY 1 AND EVERY 3 WEEKS, 500 MG/M2
     Route: 065
  3. DOCETAXEL [Suspect]
     Active Substance: DOCETAXEL
     Indication: Breast cancer
     Dosage: TAC ADJUVANT CHEMOTHERAPY; ON DAY 1 AND EVERY 3 WEEKS, 75 MG/M2
     Route: 065
  4. PEGFILGRASTIM [Concomitant]
     Active Substance: PEGFILGRASTIM
     Indication: Prophylaxis
     Dosage: ADMINISTERED 24-48 H AFTER THE CHEMOTHERAPY, 0.6 ML
     Route: 058

REACTIONS (1)
  - Renal failure [Unknown]
